FAERS Safety Report 9961410 (Version 1)
Quarter: 2014Q1

REPORT INFORMATION
  Report Type: Spontaneous
  Country: GR (occurrence: GR)
  Receive Date: 20140305
  Receipt Date: 20140305
  Transmission Date: 20141002
  Serious: Yes (Death)
  Sender: FDA-Public Use
  Company Number: GR-ASTELLAS-2014US002109

PATIENT
  Age: 61 Year
  Sex: Female

DRUGS (2)
  1. AMBISOME [Suspect]
     Indication: TRICHOSPORON INFECTION
     Dosage: 5 MG/KG, UID/QD
     Route: 042
  2. VORICONAZOLE [Concomitant]
     Indication: PRODUCT USED FOR UNKNOWN INDICATION
     Dosage: UNK
     Route: 065

REACTIONS (1)
  - Drug ineffective [Fatal]
